FAERS Safety Report 10050002 (Version 1)
Quarter: 2014Q1

REPORT INFORMATION
  Report Type: Spontaneous
  Country: US (occurrence: None)
  Receive Date: 20140331
  Receipt Date: 20140331
  Transmission Date: 20141002
  Serious: No
  Sender: FDA-Public Use
  Company Number: None

PATIENT
  Age: 33 Year
  Sex: Male
  Weight: 65.77 kg

DRUGS (2)
  1. CITALOPRAM [Suspect]
     Indication: PSYCHOTHERAPY
     Dosage: 1 PILL, ONCE DAILY, TAKEN BY MOUTH
     Route: 048
     Dates: start: 20140318
  2. EPITOL [Suspect]
     Indication: PSYCHOTHERAPY
     Dosage: 2 PER DAY, TWICE DAILY, TAKEN BY MOUTH
     Route: 048
     Dates: start: 20140318

REACTIONS (6)
  - Panic attack [None]
  - Amnesia [None]
  - Hallucination [None]
  - Pruritus [None]
  - Fear [None]
  - Impaired driving ability [None]
